FAERS Safety Report 19633770 (Version 1)
Quarter: 2021Q3

REPORT INFORMATION
  Report Type: Spontaneous
  Country: NL (occurrence: NL)
  Receive Date: 20210729
  Receipt Date: 20210729
  Transmission Date: 20211014
  Serious: Yes (Hospitalization, Other)
  Sender: FDA-Public Use
  Company Number: NL-PFIZER INC-2021904410

PATIENT
  Age: 82 Year
  Sex: Female

DRUGS (2)
  1. FULVESTRANT. [Suspect]
     Active Substance: FULVESTRANT
     Dosage: UNK
  2. PALBOCICLIB [Suspect]
     Active Substance: PALBOCICLIB
     Dosage: 125 MG
     Dates: start: 20181026, end: 20190320

REACTIONS (3)
  - Cerebral infarction [Unknown]
  - Muscular weakness [Unknown]
  - Sensory loss [Unknown]

NARRATIVE: CASE EVENT DATE: 20181119
